FAERS Safety Report 13014678 (Version 2)
Quarter: 2016Q4

REPORT INFORMATION
  Report Type: Spontaneous
  Country: US (occurrence: US)
  Receive Date: 20161209
  Receipt Date: 20161223
  Transmission Date: 20170207
  Serious: Yes (Other)
  Sender: FDA-Public Use
  Company Number: US-BAUSCH-BL-2016-030343

PATIENT
  Age: 69 Year
  Sex: Female
  Weight: 94.43 kg

DRUGS (7)
  1. ARMOUR THYROID [Concomitant]
     Active Substance: THYROID, PORCINE
     Indication: THYROID DISORDER
  2. DICYCLOMINE [Concomitant]
     Active Substance: DICYCLOMINE HYDROCHLORIDE
     Indication: FUNCTIONAL GASTROINTESTINAL DISORDER
  3. TRAMADOL. [Concomitant]
     Active Substance: TRAMADOL
     Indication: BACK PAIN
  4. LORATADINE. [Concomitant]
     Active Substance: LORATADINE
     Indication: HYPERSENSITIVITY
  5. ACETAMINOPHEN. [Concomitant]
     Active Substance: ACETAMINOPHEN
     Indication: BACK PAIN
  6. JUBLIA [Suspect]
     Active Substance: EFINACONAZOLE
     Indication: ONYCHOMYCOSIS
     Dosage: 1 APPLICATION
     Route: 061
     Dates: start: 20150710, end: 20150710
  7. METHOCARBAMOL. [Concomitant]
     Active Substance: METHOCARBAMOL
     Indication: BACK PAIN

REACTIONS (4)
  - Nail discolouration [Not Recovered/Not Resolved]
  - Onychalgia [Recovered/Resolved]
  - Nail growth abnormal [Not Recovered/Not Resolved]
  - Nail avulsion [Not Recovered/Not Resolved]

NARRATIVE: CASE EVENT DATE: 20160710
